FAERS Safety Report 8861318 (Version 2)
Quarter: 2012Q4

REPORT INFORMATION
  Report Type: Spontaneous
  Country: US (occurrence: None)
  Receive Date: 20121023
  Receipt Date: 20121114
  Transmission Date: 20130627
  Serious: Yes (Hospitalization)
  Sender: FDA-Public Use
  Company Number: SPI201200264

PATIENT
  Age: 70 Year
  Sex: Male
  Weight: 89.8 kg

DRUGS (1)
  1. AMITIZA [Suspect]
     Indication: CONSTIPATION CHRONIC
     Route: 048

REACTIONS (1)
  - Ileus [None]
